FAERS Safety Report 24322659 (Version 1)
Quarter: 2024Q3

REPORT INFORMATION
  Report Type: Spontaneous
  Country: TR (occurrence: TR)
  Receive Date: 20240916
  Receipt Date: 20240916
  Transmission Date: 20241017
  Serious: Yes (Life-Threatening, Hospitalization, Other)
  Sender: AMGEN
  Company Number: TR-AMGEN-TURSP2024180459

PATIENT
  Age: 53 Year
  Sex: Male

DRUGS (1)
  1. ADALIMUMAB [Suspect]
     Active Substance: ADALIMUMAB
     Indication: Hidradenitis
     Dosage: UNK
     Route: 065

REACTIONS (7)
  - Renal failure [Unknown]
  - Sepsis [Unknown]
  - Amyloidosis [Unknown]
  - Oxygen saturation decreased [Unknown]
  - Escherichia test positive [Unknown]
  - Pneumonia [Unknown]
  - Therapeutic product effect incomplete [Unknown]
